FAERS Safety Report 7480517-6 (Version None)
Quarter: 2011Q2

REPORT INFORMATION
  Report Type: 
  Country: None (occurrence: None)
  Receive Date: 20110516
  Receipt Date: 20110503
  Transmission Date: 20111010
  Serious: Yes (Hospitalization, Other)
  Sender: FDA-Public Use
  Company Number: US-JNJFOC-20110404862

PATIENT
  Sex: Female
  Weight: 65.77 kg

DRUGS (10)
  1. AMOXAPINE [Concomitant]
     Indication: PAIN
     Route: 048
  2. FENTANYL-100 [Suspect]
     Indication: PAIN
     Route: 062
  3. KLONOPIN [Concomitant]
     Indication: MUSCLE SPASMS
     Route: 048
  4. LYRICA [Suspect]
     Indication: FIBROMYALGIA
     Route: 048
  5. LYRICA [Suspect]
     Dosage: EVERY 4 HOURS
     Route: 048
  6. CYMBALTA [Concomitant]
     Indication: PAIN
     Route: 048
  7. FENTANYL [Suspect]
     Route: 062
  8. FENTANYL [Suspect]
     Route: 062
  9. VICODIN [Concomitant]
     Indication: BREAKTHROUGH PAIN
     Route: 048
  10. FENTANYL [Suspect]
     Indication: PAIN
     Route: 062

REACTIONS (8)
  - PAIN [None]
  - RASH [None]
  - THROAT TIGHTNESS [None]
  - DRUG INEFFECTIVE [None]
  - PATELLA REPLACEMENT [None]
  - ILL-DEFINED DISORDER [None]
  - MUSCLE SPASMS [None]
  - WEIGHT INCREASED [None]
